FAERS Safety Report 12938625 (Version 1)
Quarter: 2016Q4

REPORT INFORMATION
  Report Type: Spontaneous
  Country: US (occurrence: US)
  Receive Date: 20161115
  Receipt Date: 20161115
  Transmission Date: 20170207
  Serious: No
  Sender: FDA-Public Use
  Company Number: US-PFIZER INC-2016519639

PATIENT
  Sex: Male

DRUGS (2)
  1. AMIODARONE HCL [Suspect]
     Active Substance: AMIODARONE HYDROCHLORIDE
     Indication: VENTRICULAR TACHYCARDIA
     Dosage: UNK
  2. SOTALOL. [Suspect]
     Active Substance: SOTALOL
     Dosage: UNK

REACTIONS (4)
  - Toxicity to various agents [Unknown]
  - Liver disorder [Unknown]
  - Lung disorder [Unknown]
  - Eye disorder [Unknown]
